FAERS Safety Report 24799722 (Version 1)
Quarter: 2025Q1

REPORT INFORMATION
  Report Type: Spontaneous
  Country: AU (occurrence: AU)
  Receive Date: 20250102
  Receipt Date: 20250102
  Transmission Date: 20250408
  Serious: Yes (Other)
  Sender: TAKEDA
  Company Number: None

PATIENT
  Age: 43 Year
  Sex: Female

DRUGS (20)
  1. HUMAN IMMUNOGLOBULIN G [Suspect]
     Active Substance: HUMAN IMMUNOGLOBULIN G
     Indication: Immunosuppressant drug therapy
  2. HUMAN IMMUNOGLOBULIN G [Suspect]
     Active Substance: HUMAN IMMUNOGLOBULIN G
     Indication: Encephalomyelitis
  3. HUMAN IMMUNOGLOBULIN G [Suspect]
     Active Substance: HUMAN IMMUNOGLOBULIN G
     Indication: Muscle rigidity
  4. HUMAN IMMUNOGLOBULIN G [Suspect]
     Active Substance: HUMAN IMMUNOGLOBULIN G
     Indication: Myoclonus
  5. DEXAMETHASONE [Suspect]
     Active Substance: DEXAMETHASONE
     Indication: Immunosuppressant drug therapy
     Dosage: 8 MILLIGRAM, QD
  6. DEXAMETHASONE [Suspect]
     Active Substance: DEXAMETHASONE
     Indication: Muscle rigidity
  7. DEXAMETHASONE [Suspect]
     Active Substance: DEXAMETHASONE
     Indication: Myoclonus
  8. DEXAMETHASONE [Suspect]
     Active Substance: DEXAMETHASONE
     Indication: Encephalomyelitis
  9. RITUXIMAB [Suspect]
     Active Substance: RITUXIMAB
     Indication: Immunosuppressant drug therapy
  10. RITUXIMAB [Suspect]
     Active Substance: RITUXIMAB
     Indication: Muscle rigidity
  11. RITUXIMAB [Suspect]
     Active Substance: RITUXIMAB
     Indication: Myoclonus
  12. RITUXIMAB [Suspect]
     Active Substance: RITUXIMAB
     Indication: Encephalomyelitis
  13. MYCOPHENOLIC ACID [Suspect]
     Active Substance: MYCOPHENOLIC ACID
     Indication: Immunosuppressant drug therapy
  14. MYCOPHENOLIC ACID [Suspect]
     Active Substance: MYCOPHENOLIC ACID
     Indication: Encephalomyelitis
  15. MYCOPHENOLIC ACID [Suspect]
     Active Substance: MYCOPHENOLIC ACID
     Indication: Muscle rigidity
  16. MYCOPHENOLIC ACID [Suspect]
     Active Substance: MYCOPHENOLIC ACID
     Indication: Myoclonus
  17. PREDNISONE [Suspect]
     Active Substance: PREDNISONE
     Indication: Immunosuppressant drug therapy
     Dosage: 25 MILLIGRAM, QD
  18. PREDNISONE [Suspect]
     Active Substance: PREDNISONE
     Indication: Muscle rigidity
  19. PREDNISONE [Suspect]
     Active Substance: PREDNISONE
     Indication: Myoclonus
  20. PREDNISONE [Suspect]
     Active Substance: PREDNISONE
     Indication: Encephalomyelitis

REACTIONS (4)
  - Disease recurrence [Unknown]
  - Lumbar vertebral fracture [Unknown]
  - Off label use [Unknown]
  - Osteopenia [Unknown]
